FAERS Safety Report 10060621 (Version 2)
Quarter: 2014Q2

REPORT INFORMATION
  Report Type: Report from Study
  Country: DE (occurrence: DE)
  Receive Date: 20140404
  Receipt Date: 20140410
  Transmission Date: 20141212
  Serious: Yes (Hospitalization)
  Sender: FDA-Public Use
  Company Number: PHHO2014DE004824

PATIENT
  Sex: 0

DRUGS (5)
  1. BLINDED AFINITOR [Suspect]
     Indication: ASTROCYTOMA, LOW GRADE
     Dosage: CODE NOT BROKEN
  2. BLINDED NO TREATMENT RECEIVED [Suspect]
     Indication: ASTROCYTOMA, LOW GRADE
     Dosage: CODE NOT BROKEN
  3. BLINDED PLACEBO [Suspect]
     Indication: ASTROCYTOMA, LOW GRADE
     Dosage: CODE NOT BROKEN
  4. RAD001O [Suspect]
     Indication: ASTROCYTOMA, LOW GRADE
     Dosage: 5 MG, QD
     Dates: start: 20120406
  5. CARBAMAZEPINE [Concomitant]
     Indication: EPILEPSY
     Dosage: 6.5 ML, TID
     Dates: start: 20131201

REACTIONS (2)
  - Gastritis [Recovered/Resolved]
  - Vomiting [Recovered/Resolved]
